FAERS Safety Report 10532778 (Version 1)
Quarter: 2014Q4

REPORT INFORMATION
  Report Type: Spontaneous
  Country: TR (occurrence: TR)
  Receive Date: 20141022
  Receipt Date: 20141022
  Transmission Date: 20150529
  Serious: Yes (Disabling)
  Sender: FDA-Public Use
  Company Number: TR-009507513-1410TUR009272

PATIENT
  Sex: Female

DRUGS (5)
  1. RIBAVIRIN. [Suspect]
     Active Substance: RIBAVIRIN
     Indication: HEPATITIS C
     Dosage: FREQUENCY: 2X3
     Route: 048
     Dates: start: 20140909
  2. PEGINTERFERON ALFA-2B [Suspect]
     Active Substance: PEGINTERFERON ALFA-2B
     Indication: HEPATITIS C
     Dosage: WEEKLY
     Route: 058
     Dates: start: 20140909
  3. BOCEPREVIR [Suspect]
     Active Substance: BOCEPREVIR
     Indication: HEPATITIS C
     Dosage: FREQUENCY: 3X6
     Route: 048
     Dates: start: 20141008
  4. NERUDA [Concomitant]
  5. CANDESARTAN CILEXETIL (+) HYDROCHLOROTHIAZIDE [Concomitant]
     Active Substance: CANDESARTAN CILEXETIL\HYDROCHLOROTHIAZIDE

REACTIONS (2)
  - Vision blurred [Not Recovered/Not Resolved]
  - Visual acuity reduced [Not Recovered/Not Resolved]

NARRATIVE: CASE EVENT DATE: 20141005
